FAERS Safety Report 6837701-1 (Version None)
Quarter: 2010Q3

REPORT INFORMATION
  Report Type: 
  Country: None (occurrence: None)
  Receive Date: 20100713
  Receipt Date: 20100702
  Transmission Date: 20110219
  Serious: Yes (Other)
  Sender: FDA-Public Use
  Company Number: NL-AMGEN-QUU423290

PATIENT
  Sex: Male

DRUGS (4)
  1. ENBREL [Suspect]
     Indication: RHEUMATOID ARTHRITIS
     Dosage: UNKNOWN
     Dates: start: 20070101, end: 20090301
  2. ENBREL [Suspect]
     Dosage: 50 MG
     Dates: start: 20100301
  3. CELEBREX [Concomitant]
  4. METHOTREXATE [Concomitant]
     Dosage: UNKNOWN

REACTIONS (4)
  - ARTHRITIS [None]
  - DRUG INEFFECTIVE [None]
  - GASTROINTESTINAL CARCINOMA [None]
  - MALIGNANT NEOPLASM PROGRESSION [None]
